FAERS Safety Report 17415781 (Version 2)
Quarter: 2020Q2

REPORT INFORMATION
  Report Type: Report from Study
  Country: FR (occurrence: FR)
  Receive Date: 20200213
  Receipt Date: 20200619
  Transmission Date: 20200713
  Serious: Yes (Hospitalization)
  Sender: FDA-Public Use
  Company Number: FR-JNJFOC-20190713610

PATIENT
  Age: 53 Year
  Sex: Male
  Weight: 78 kg

DRUGS (13)
  1. DARATUMUMAB [Suspect]
     Active Substance: DARATUMUMAB
     Indication: PLASMA CELL MYELOMA
     Dosage: FREQUENCY: PER PROTOCOL
     Route: 042
     Dates: start: 20170717, end: 20190605
  2. BORTEZOMIB. [Concomitant]
     Active Substance: BORTEZOMIB
     Indication: PLASMA CELL MYELOMA
     Dosage: FREQUENCY PER PROTOCOL
     Route: 058
     Dates: start: 20160913, end: 20160916
  3. LYRICA [Concomitant]
     Active Substance: PREGABALIN
     Route: 048
     Dates: start: 20170614
  4. VALACICLOVIR [Concomitant]
     Active Substance: VALACYCLOVIR HYDROCHLORIDE
     Route: 048
     Dates: start: 20160913
  5. LAMALINE                           /00764901/ [Concomitant]
     Active Substance: ACETAMINOPHEN\BELLADONNA LEAF\CAFFEINE\OPIUM
     Dosage: FREQUENCY: 3 PER DAY
     Route: 048
     Dates: start: 201906
  6. THALIDOMIDE [Concomitant]
     Active Substance: THALIDOMIDE
     Indication: PLASMA CELL MYELOMA
     Dosage: FREQUENCY: PER PROTOCOL
     Route: 048
     Dates: start: 20160913, end: 20170102
  7. DESLORATADINE. [Concomitant]
     Active Substance: DESLORATADINE
     Route: 048
     Dates: start: 20160913
  8. BARACLUDE [Concomitant]
     Active Substance: ENTECAVIR
     Route: 048
     Dates: start: 20170913
  9. DEXAMETHASONE. [Concomitant]
     Active Substance: DEXAMETHASONE
     Indication: PLASMA CELL MYELOMA
     Dosage: FREQUENCY: PER PROTOCOL?40/20 MG
     Route: 048
     Dates: start: 20160913, end: 20170102
  10. DEXAMETHASONE. [Concomitant]
     Active Substance: DEXAMETHASONE
     Dosage: FREQUENCY: PER PROTOCOL
     Route: 048
     Dates: start: 20160916
  11. ESOMEPRAZOLE. [Concomitant]
     Active Substance: ESOMEPRAZOLE MAGNESIUM
     Route: 048
     Dates: start: 20160913
  12. LACTULOSE. [Concomitant]
     Active Substance: LACTULOSE
     Route: 048
  13. PANTOPRAZOLE [Concomitant]
     Active Substance: PANTOPRAZOLE

REACTIONS (2)
  - Atrial fibrillation [Recovered/Resolved with Sequelae]
  - Cardiac amyloidosis [Not Recovered/Not Resolved]

NARRATIVE: CASE EVENT DATE: 20190703
